FAERS Safety Report 8481424 (Version 2)
Quarter: 2013Q3

REPORT INFORMATION
  Report Type: Spontaneous
  Country: CZ (occurrence: None)
  Receive Date: 20120321
  Receipt Date: 20130812
  Transmission Date: 20140515
  Serious: Yes (Hospitalization)
  Sender: FDA-Public Use
  Company Number: CZ-023763

PATIENT
  Age: 73 Year
  Sex: Female

DRUGS (7)
  1. CHLORAMBUCIL [Suspect]
     Indication: CHRONIC LYMPHOCYTIC LEUKAEMIA
     Dosage: DAYS 1, 15, 28 CYCLIC
     Route: 048
     Dates: start: 20110810
  2. STUDY MEDICATION [Suspect]
     Indication: CHRONIC LYMPHOCYTIC LEUKAEMIA
     Route: 042
     Dates: start: 20110810
  3. MILURIT (ALLOPURINOL) [Concomitant]
  4. TORECAN (THIETHYLPERAZINE) [Concomitant]
  5. PARALEN (PARACETAMOL) [Concomitant]
  6. SOLU-MEDROL (METHYLPREDNISOLONE) [Concomitant]
  7. DITHADEN (BISULEPIN HYDROCHLORIDE) [Concomitant]

REACTIONS (2)
  - Pyrexia [None]
  - Escherichia urinary tract infection [None]
